FAERS Safety Report 6274726-1 (Version None)
Quarter: 2009Q3

REPORT INFORMATION
  Report Type: 
  Country: None (occurrence: None)
  Receive Date: 20090721
  Receipt Date: 20070613
  Transmission Date: 20100115
  Serious: Yes (Other)
  Sender: FDA-Public Use
  Company Number: US-ASTRAZENECA-2006UW26368

PATIENT
  Age: 21742 Day
  Sex: Female
  Weight: 65.8 kg

DRUGS (22)
  1. SEROQUEL [Suspect]
     Indication: SCHIZOAFFECTIVE DISORDER
     Dosage: 25-100 MG
     Route: 048
     Dates: start: 19990521
  2. SEROQUEL [Suspect]
     Route: 048
     Dates: start: 19990701
  3. SEROQUEL [Suspect]
     Route: 048
     Dates: end: 20050813
  4. XENICAL [Concomitant]
  5. GEODON [Concomitant]
  6. TRILAFON [Concomitant]
  7. ZYPREXA [Concomitant]
  8. FLURBIPROFEN [Concomitant]
     Dates: start: 19990521
  9. THEOCHRON [Concomitant]
     Dates: start: 19990521
  10. ZOCOR [Concomitant]
     Dosage: 10-20 MG DAILY
     Dates: start: 19990521
  11. PERPHENAZINE [Concomitant]
     Dates: start: 19990521
  12. COZAAR [Concomitant]
     Dates: start: 19990521
  13. CYCLOBENZAPRINE HCL [Concomitant]
     Dosage: 20-30 MG
     Route: 048
     Dates: start: 19990521
  14. SINGULAIR [Concomitant]
     Route: 048
     Dates: start: 19990521
  15. ESTRATEST [Concomitant]
     Dates: start: 19990521
  16. EFFEXOR [Concomitant]
     Dosage: 75-300 MG
     Route: 048
     Dates: start: 19990521
  17. PRILOSEC [Concomitant]
     Dosage: 20-40 MG
     Route: 048
     Dates: start: 19990521
  18. LORAZEPAM [Concomitant]
     Dosage: 0.5-1.5 MG
     Route: 048
     Dates: start: 19990120
  19. NORVASC [Concomitant]
     Dates: start: 19990521
  20. BENZTROPINE MESYLATE [Concomitant]
     Dosage: 6 MG ONCE A DAY
     Dates: start: 19990521
  21. LANOXIN [Concomitant]
     Dosage: 250 MCG, DAILY
     Route: 048
     Dates: start: 20040310
  22. PREDNISONE [Concomitant]
     Indication: PANNICULITIS
     Dosage: 5-20 MG DAILY
     Route: 048
     Dates: start: 20020709

REACTIONS (3)
  - DIABETES MELLITUS [None]
  - DIABETIC GASTROPARESIS [None]
  - DIABETIC RETINOPATHY [None]
